FAERS Safety Report 9332082 (Version 1)
Quarter: 2013Q2

REPORT INFORMATION
  Report Type: Spontaneous
  Country: US (occurrence: US)
  Receive Date: 20130605
  Receipt Date: 20130605
  Transmission Date: 20140414
  Serious: No
  Sender: FDA-Public Use
  Company Number: US-009507513-1305USA016928

PATIENT
  Age: 63 Year
  Sex: Female

DRUGS (4)
  1. JANUVIA [Suspect]
     Dosage: 100 MG, QD
     Route: 048
     Dates: start: 200505, end: 2013
  2. ACTOS [Suspect]
  3. LEVOTHYROXINE SODIUM [Concomitant]
     Route: 048
  4. PRINIVIL [Concomitant]
     Route: 048

REACTIONS (3)
  - Blood glucose increased [Recovering/Resolving]
  - Drug dose omission [Unknown]
  - Local swelling [Unknown]
